FAERS Safety Report 10007380 (Version 2)
Quarter: 2014Q1

REPORT INFORMATION
  Report Type: Report from Study
  Country: CA (occurrence: CA)
  Receive Date: 20140313
  Receipt Date: 20140313
  Transmission Date: 20141002
  Serious: Yes (Other)
  Sender: FDA-Public Use
  Company Number: CA-BRISTOL-MYERS SQUIBB COMPANY-19012392

PATIENT
  Age: 75 Year
  Sex: Female

DRUGS (5)
  1. ORENCIA [Suspect]
     Indication: RHEUMATOID ARTHRITIS
     Dosage: 1DF:500 UNIT NOS,ONGOING?3E73716 EXP DATE:MAR2016
     Dates: start: 20100728
  2. METHOTREXATE [Suspect]
  3. FOLIC ACID [Concomitant]
  4. ASPIRIN [Concomitant]
  5. HYDROXYCHLOROQUINE [Concomitant]

REACTIONS (5)
  - Eye disorder [Unknown]
  - Loss of consciousness [Recovered/Resolved]
  - Fall [Unknown]
  - Headache [Recovered/Resolved]
  - Eye infection [Unknown]
